FAERS Safety Report 7516338-5 (Version None)
Quarter: 2011Q2

REPORT INFORMATION
  Report Type: 
  Country: None (occurrence: None)
  Receive Date: 20110601
  Receipt Date: 20110527
  Transmission Date: 20111010
  Serious: Yes (Other)
  Sender: FDA-Public Use
  Company Number: BR-PFIZER INC-2011116166

PATIENT
  Age: 61 Year
  Sex: Female
  Weight: 72 kg

DRUGS (11)
  1. LORAX [Concomitant]
     Indication: AGITATION
     Dosage: 2 MG, 1X/DAY
     Dates: start: 20030101
  2. ONBREZ [Concomitant]
     Dosage: 1X/DAY
  3. VARENICLINE TARTRATE [Suspect]
     Dosage: 1 MG, EVERY 12 HOURS
     Route: 048
     Dates: start: 20110501
  4. FORMOTEROL FUMARATE [Concomitant]
     Indication: ASTHMA
     Dosage: 2X/DAY
     Dates: start: 20110517
  5. VARENICLINE TARTRATE [Suspect]
     Indication: TOBACCO USER
     Dosage: UNK
     Route: 048
     Dates: start: 20110517, end: 20110501
  6. AEROCORT [Concomitant]
     Indication: ASTHMA
     Dosage: UNK
  7. LORAX [Concomitant]
     Indication: DEATH OF RELATIVE
  8. FORMOTEROL FUMARATE [Concomitant]
     Indication: CHRONIC OBSTRUCTIVE PULMONARY DISEASE
  9. CAPTOPRIL [Concomitant]
     Indication: HYPERTENSION
     Dosage: 25 MG, 2X/DAY
     Dates: start: 20090101
  10. SERETIDE [Concomitant]
     Dosage: 2X/DAY
     Dates: start: 20110517
  11. BAMIFIX [Concomitant]
     Dosage: 1X/DAY
     Dates: start: 20090101

REACTIONS (4)
  - NERVOUSNESS [None]
  - DEPRESSION [None]
  - ASTHMATIC CRISIS [None]
  - HYPERTENSION [None]
